FAERS Safety Report 9115516 (Version 1)
Quarter: 2013Q1

REPORT INFORMATION
  Report Type: Spontaneous
  Country: US (occurrence: None)
  Receive Date: 20130221
  Receipt Date: 20130221
  Transmission Date: 20140127
  Serious: Yes (Other)
  Sender: FDA-Public Use
  Company Number: None

PATIENT
  Age: 57 Year
  Sex: Female

DRUGS (1)
  1. VOTRIENT 200MG  GLAXOSMITHKLINE [Suspect]
     Indication: RENAL CANCER
     Dosage: VOTRIENT 200MG  800MG Q DAY PO
     Route: 048
     Dates: start: 20120912, end: 20130129

REACTIONS (3)
  - Renal cancer [None]
  - Malignant neoplasm progression [None]
  - Unevaluable event [None]
